FAERS Safety Report 15752094 (Version 1)
Quarter: 2018Q4

REPORT INFORMATION
  Report Type: Spontaneous
  Country: US (occurrence: US)
  Receive Date: 20181221
  Receipt Date: 20181221
  Transmission Date: 20190205
  Serious: Yes (Hospitalization)
  Sender: FDA-Public Use
  Company Number: US-PFIZER INC-2018478174

PATIENT
  Age: 77 Year
  Sex: Female
  Weight: 58.97 kg

DRUGS (4)
  1. THERMACARE ULTRA [Suspect]
     Active Substance: CAMPHOR (SYNTHETIC)\CAPSICUM OLEORESIN\MENTHOL\METHYL SALICYLATE
     Indication: ARTHRALGIA
  2. ARMOUR THYROID [Concomitant]
     Active Substance: THYROID, PORCINE
     Indication: HYPOTHYROIDISM
     Dosage: 105 MG, DAILY (90MG IN THE MORNING15MG IN THE AFTERNOON)
  3. THERMACARE ULTRA [Suspect]
     Active Substance: CAMPHOR (SYNTHETIC)\CAPSICUM OLEORESIN\MENTHOL\METHYL SALICYLATE
     Indication: OSTEOARTHRITIS
  4. THERMACARE ULTRA [Suspect]
     Active Substance: CAMPHOR (SYNTHETIC)\CAPSICUM OLEORESIN\MENTHOL\METHYL SALICYLATE
     Indication: PAIN
     Dosage: UNK, 1X/DAY [APPLIED TO BOTH KNEES]
     Route: 061
     Dates: start: 20181114, end: 20181115

REACTIONS (6)
  - Asthma [Recovered/Resolved]
  - Drug hypersensitivity [Unknown]
  - Cough [Recovered/Resolved]
  - Lacrimation increased [Recovered/Resolved]
  - Application site pain [Recovered/Resolved]
  - Chest discomfort [Recovered/Resolved]

NARRATIVE: CASE EVENT DATE: 201811
